FAERS Safety Report 10049401 (Version 1)
Quarter: 2014Q2

REPORT INFORMATION
  Report Type: Spontaneous
  Country: IT (occurrence: IT)
  Receive Date: 20140401
  Receipt Date: 20140401
  Transmission Date: 20141212
  Serious: Yes (Hospitalization)
  Sender: FDA-Public Use
  Company Number: IT-SUN PHARMACEUTICAL INDUSTRIES LTD-2014SUN00666

PATIENT
  Age: 22 Year
  Sex: Male

DRUGS (4)
  1. OLANZAPINA [Suspect]
     Indication: AUTISM
     Dosage: 15 MG, QD
     Route: 065
  2. OLANZAPINA [Suspect]
     Indication: HALLUCINATION
  3. TOPIRAMATE [Suspect]
     Indication: AUTISM
     Dosage: 300 MG, UNK
     Route: 065
  4. TOPIRAMATE [Suspect]
     Indication: HALLUCINATION

REACTIONS (2)
  - Drug interaction [Unknown]
  - Priapism [Recovered/Resolved]
